FAERS Safety Report 6226671-5 (Version None)
Quarter: 2009Q2

REPORT INFORMATION
  Report Type: 
  Country: None (occurrence: None)
  Receive Date: 20090612
  Receipt Date: 20090520
  Transmission Date: 20091009
  Serious: No
  Sender: FDA-Public Use
  Company Number: US-ABBOTT-09P-163-0574835-00

PATIENT
  Sex: Female
  Weight: 108.96 kg

DRUGS (4)
  1. HUMIRA [Suspect]
     Indication: RHEUMATOID ARTHRITIS
     Route: 058
     Dates: start: 20081001, end: 20090305
  2. HUMIRA [Suspect]
     Indication: PSORIASIS
  3. ARTHROTEC [Concomitant]
     Indication: RHEUMATOID ARTHRITIS
     Route: 048
  4. VAGISIL [Concomitant]
     Indication: VULVOVAGINAL PRURITUS
     Dosage: UNKNOWN
     Route: 061

REACTIONS (3)
  - ABDOMINAL PAIN UPPER [None]
  - PSORIASIS [None]
  - VULVOVAGINAL PRURITUS [None]
